FAERS Safety Report 15834247 (Version 3)
Quarter: 2019Q1

REPORT INFORMATION
  Report Type: Report from Study
  Country: US (occurrence: US)
  Receive Date: 20190116
  Receipt Date: 20190222
  Transmission Date: 20190417
  Serious: Yes (Hospitalization)
  Sender: FDA-Public Use
  Company Number: PHEH2019US001855

PATIENT
  Sex: Female

DRUGS (4)
  1. ESTRADIOL. [Concomitant]
     Active Substance: ESTRADIOL
     Indication: PRODUCT USED FOR UNKNOWN INDICATION
     Route: 065
  2. SERTRALINE [Concomitant]
     Active Substance: SERTRALINE HYDROCHLORIDE
     Indication: PRODUCT USED FOR UNKNOWN INDICATION
     Route: 065
  3. COSENTYX [Suspect]
     Active Substance: SECUKINUMAB
     Indication: PSORIASIS
     Dosage: 300 MG, QW
     Route: 058
     Dates: start: 20181228
  4. COSENTYX [Suspect]
     Active Substance: SECUKINUMAB
     Dosage: 300 MG, Q4W
     Route: 058

REACTIONS (9)
  - Hypoaesthesia [Unknown]
  - Bone pain [Unknown]
  - Pruritus [Unknown]
  - Blood pressure fluctuation [Unknown]
  - Muscular weakness [Unknown]
  - Pain [Unknown]
  - Blister [Unknown]
  - Pain in extremity [Unknown]
  - Injection site pruritus [Unknown]
